FAERS Safety Report 24354631 (Version 1)
Quarter: 2024Q3

REPORT INFORMATION
  Report Type: Spontaneous
  Country: US (occurrence: None)
  Receive Date: 20240923
  Receipt Date: 20240923
  Transmission Date: 20241016
  Serious: Yes (Other)
  Sender: Public
  Company Number: None

PATIENT
  Age: 7 Year
  Sex: Male
  Weight: 36 kg

DRUGS (1)
  1. YCANTH [Suspect]
     Active Substance: CANTHARIDIN
     Indication: Molluscum contagiosum
     Dates: start: 20240920, end: 20240920

REACTIONS (4)
  - Abdominal pain [None]
  - Circulatory collapse [None]
  - Muscle rigidity [None]
  - Loss of consciousness [None]

NARRATIVE: CASE EVENT DATE: 20240921
